FAERS Safety Report 25958641 (Version 1)
Quarter: 2025Q4

REPORT INFORMATION
  Report Type: Spontaneous
  Country: US (occurrence: US)
  Receive Date: 20251024
  Receipt Date: 20251024
  Transmission Date: 20260118
  Serious: No
  Sender: BIOGEN
  Company Number: US-BIOGEN-2087443

PATIENT
  Sex: Female

DRUGS (4)
  1. VUMERITY [Suspect]
     Active Substance: DIROXIMEL FUMARATE
     Indication: Multiple sclerosis
  2. KEPPRA [Concomitant]
     Active Substance: LEVETIRACETAM
  3. ZONISAMIDE [Concomitant]
     Active Substance: ZONISAMIDE
  4. ADVIL [Concomitant]
     Active Substance: IBUPROFEN

REACTIONS (5)
  - Pain [Unknown]
  - Balance disorder [Unknown]
  - Constipation [Unknown]
  - Gait disturbance [Unknown]
  - Haematochezia [Unknown]
